FAERS Safety Report 14605407 (Version 2)
Quarter: 2019Q3

REPORT INFORMATION
  Report Type: Spontaneous
  Country: DE (occurrence: DE)
  Receive Date: 20180306
  Receipt Date: 20190812
  Transmission Date: 20191004
  Serious: Yes (Other)
  Sender: FDA-Public Use
  Company Number: DE-BIOGEN-2018BI00537890

PATIENT
  Age: 34 Year
  Sex: Female

DRUGS (6)
  1. METHYLPREDNISOLONE. [Concomitant]
     Active Substance: METHYLPREDNISOLONE
     Indication: MULTIPLE SCLEROSIS
     Dosage: 5 TIMES
     Route: 050
     Dates: start: 201205, end: 201205
  2. METHYLPREDNISOLONE. [Concomitant]
     Active Substance: METHYLPREDNISOLONE
     Dosage: 4 TIMES
     Route: 050
     Dates: start: 201206, end: 201206
  3. METHYLPREDNISOLONE. [Concomitant]
     Active Substance: METHYLPREDNISOLONE
     Dosage: 4 TIMES
     Route: 050
     Dates: start: 201207, end: 201207
  4. METHYLPREDNISOLONE. [Concomitant]
     Active Substance: METHYLPREDNISOLONE
     Dosage: 5 TIMES
     Route: 050
     Dates: start: 201207, end: 201207
  5. TYSABRI [Suspect]
     Active Substance: NATALIZUMAB
     Indication: RELAPSING-REMITTING MULTIPLE SCLEROSIS
     Route: 050
     Dates: start: 2007, end: 201110
  6. METHYLPREDNISOLONE. [Concomitant]
     Active Substance: METHYLPREDNISOLONE
     Dosage: 5 TIMES
     Route: 050
     Dates: start: 201205

REACTIONS (3)
  - Premature delivery [Unknown]
  - Maternal exposure during pregnancy [Recovered/Resolved]
  - Caesarean section [Recovered/Resolved]

NARRATIVE: CASE EVENT DATE: 20120704
